FAERS Safety Report 25682000 (Version 1)
Quarter: 2025Q3

REPORT INFORMATION
  Report Type: Spontaneous
  Country: CA (occurrence: CA)
  Receive Date: 20250814
  Receipt Date: 20250814
  Transmission Date: 20251020
  Serious: Yes (Other)
  Sender: NOVO NORDISK
  Company Number: None

PATIENT
  Age: 47 Year
  Sex: Female
  Weight: 62 kg

DRUGS (2)
  1. NORDITROPIN [Suspect]
     Active Substance: SOMATROPIN
     Route: 058
  2. NORDITROPIN [Suspect]
     Active Substance: SOMATROPIN
     Indication: Growth hormone deficiency
     Route: 058

REACTIONS (9)
  - Blood alkaline phosphatase decreased [Unknown]
  - Fatigue [Unknown]
  - Lymphadenopathy [Unknown]
  - Mean cell volume increased [Unknown]
  - Pneumonia [Unknown]
  - Pollakiuria [Unknown]
  - Red blood cell count decreased [Unknown]
  - Thirst [Unknown]
  - Weight decreased [Unknown]
